FAERS Safety Report 21830820 (Version 1)
Quarter: 2023Q1

REPORT INFORMATION
  Report Type: Spontaneous
  Country: US (occurrence: None)
  Receive Date: 20230105
  Receipt Date: 20230105
  Transmission Date: 20230417
  Serious: No
  Sender: FDA-Public Use
  Company Number: None

PATIENT
  Age: 64 Year
  Sex: Female

DRUGS (1)
  1. LOTEPREDNOL [Suspect]
     Active Substance: LOTEPREDNOL

REACTIONS (3)
  - Product substitution issue [None]
  - Therapeutic product effect decreased [None]
  - Therapeutic response changed [None]
